FAERS Safety Report 4470652-9 (Version None)
Quarter: 2004Q4

REPORT INFORMATION
  Report Type: 
  Country: None (occurrence: None)
  Receive Date: 20041005
  Receipt Date: 20040923
  Transmission Date: 20050328
  Serious: Yes (Other)
  Sender: FDA-Public Use
  Company Number: 200407185

PATIENT
  Age: 40 Year
  Sex: Female

DRUGS (3)
  1. BOTOX [Suspect]
     Indication: SKIN WRINKLING
     Dates: start: 20020801, end: 20020801
  2. BOTOX [Suspect]
     Indication: SKIN WRINKLING
     Dosage: 25 UNITS ONCE IM
     Route: 030
     Dates: start: 20030331, end: 20030331
  3. BOTOX [Suspect]
     Indication: SKIN WRINKLING
     Dosage: 35 UNITS ONCE IM
     Route: 030
     Dates: start: 20040225, end: 20040225

REACTIONS (7)
  - ABORTION INDUCED [None]
  - ABORTION SPONTANEOUS [None]
  - CHROMOSOME ABNORMALITY [None]
  - FOETAL DISORDER [None]
  - MATERNAL DRUGS AFFECTING FOETUS [None]
  - PREGNANCY [None]
  - TRISOMY 21 [None]
